FAERS Safety Report 5848144-1 (Version None)
Quarter: 2008Q3

REPORT INFORMATION
  Report Type: 
  Country: None (occurrence: None)
  Receive Date: 20080818
  Receipt Date: 20080808
  Transmission Date: 20090109
  Serious: Yes (Other)
  Sender: FDA-Public Use
  Company Number: A0725657A

PATIENT
  Age: 65 Year
  Sex: Female

DRUGS (7)
  1. AVANDIA [Suspect]
  2. AVANDAMET [Suspect]
     Dosage: 2TAB TWICE PER DAY
  3. NAPROXEN [Concomitant]
  4. XENICAL [Concomitant]
  5. BENAZEPRIL HYDROCHLORIDE [Concomitant]
  6. LEXAPRO [Concomitant]
  7. METFORMIN HCL [Concomitant]

REACTIONS (5)
  - ACUTE CORONARY SYNDROME [None]
  - CORONARY ARTERY DISEASE [None]
  - HEART INJURY [None]
  - MYOCARDIAL INFARCTION [None]
  - PRINZMETAL ANGINA [None]
